FAERS Safety Report 9735065 (Version 2)
Quarter: 2013Q4

REPORT INFORMATION
  Report Type: Spontaneous
  Country: DE (occurrence: DE)
  Receive Date: 20131206
  Receipt Date: 20131206
  Transmission Date: 20140711
  Serious: Yes (Other)
  Sender: FDA-Public Use
  Company Number: DE-UCBSA-103835

PATIENT
  Age: 64 Year
  Sex: Female
  Weight: 65 kg

DRUGS (17)
  1. VIMPAT [Suspect]
     Indication: EPILEPSY
     Route: 048
  2. VIMPAT [Suspect]
     Indication: CONVULSION
     Route: 048
  3. VIMPAT [Suspect]
     Indication: EPILEPSY
     Route: 048
  4. VIMPAT [Suspect]
     Indication: CONVULSION
     Route: 048
  5. VIMPAT [Suspect]
     Indication: EPILEPSY
     Route: 048
     Dates: start: 20110706
  6. VIMPAT [Suspect]
     Indication: CONVULSION
     Route: 048
     Dates: start: 20110706
  7. KEPPRA [Concomitant]
     Indication: EPILEPSY
     Route: 048
     Dates: start: 20120509
  8. TROBALT [Concomitant]
  9. GABAPENTIN [Concomitant]
     Indication: EPILEPSY
     Dosage: TITRATED STEP BY STEP UP TO 2400 MG/DAY
  10. GABAPENTIN [Concomitant]
     Indication: EPILEPSY
     Route: 048
     Dates: start: 20100910
  11. ORFIRIL [Concomitant]
     Indication: EPILEPSY
     Route: 048
     Dates: start: 2009
  12. ASS [Concomitant]
  13. PANTOZOL [Concomitant]
  14. SIMVASTATIN [Concomitant]
  15. MIRTAZAPIN [Concomitant]
     Dosage: STRENGTH: 30 MG
  16. ALDACTONE [Concomitant]
     Dosage: STRENGTH: 25 MG
  17. THYRONAJOD [Concomitant]
     Dosage: STRENGTH: 25 ?G

REACTIONS (3)
  - Myoclonus [Recovering/Resolving]
  - Urinary retention [Recovered/Resolved]
  - Anticonvulsant drug level decreased [Unknown]
